FAERS Safety Report 9213820 (Version 1)
Quarter: 2013Q2

REPORT INFORMATION
  Report Type: Spontaneous
  Country: NL (occurrence: NL)
  Receive Date: 20130405
  Receipt Date: 20130405
  Transmission Date: 20140414
  Serious: Yes (Other)
  Sender: FDA-Public Use
  Company Number: NL-AMGEN-NLDSP2013023854

PATIENT
  Age: 46 Year
  Sex: Female

DRUGS (2)
  1. ENBREL [Suspect]
     Indication: ANKYLOSING SPONDYLITIS
     Dosage: 50 MG, WEEKLY
     Dates: start: 201212
  2. DICLOFENAC [Concomitant]
     Dosage: UNK

REACTIONS (3)
  - Fatigue [Recovering/Resolving]
  - Exercise tolerance decreased [Recovering/Resolving]
  - Respiratory tract infection [Recovering/Resolving]
